FAERS Safety Report 8538811-3 (Version None)
Quarter: 2012Q2

REPORT INFORMATION
  Report Type: 
  Country: None (occurrence: None)
  Receive Date: 20120416
  Receipt Date: 20091013
  Transmission Date: 20120825
  Serious: Yes (Other)
  Sender: FDA-Public Use
  Company Number: PHEH2008US11208

PATIENT
  Age: 69 Year
  Sex: Female

DRUGS (1)
  1. DIOVAN [Suspect]
     Indication: BLOOD PRESSURE

REACTIONS (6)
  - BLOOD ALDOSTERONE DECREASED [None]
  - BLOOD PRESSURE INADEQUATELY CONTROLLED [None]
  - RENIN INCREASED [None]
  - SWELLING [None]
  - HYPERTENSION [None]
  - FLUID RETENTION [None]
